FAERS Safety Report 10538460 (Version 2)
Quarter: 2014Q4

REPORT INFORMATION
  Report Type: Spontaneous
  Country: US (occurrence: US)
  Receive Date: 20141023
  Receipt Date: 20141023
  Transmission Date: 20150529
  Serious: No
  Sender: FDA-Public Use
  Company Number: US-RECKITT BENCKISER PHARMACEUTICAL, INC-RB-64960-2014

PATIENT

DRUGS (5)
  1. SUBOXONE [Suspect]
     Active Substance: BUPRENORPHINE HYDROCHLORIDE\NALOXONE HYDROCHLORIDE
     Dosage: SUBOXONE FILM; PRESCRIBED 1 1/2 STRIPS DAILY
     Route: 065
     Dates: start: 20140321
  2. NICOTINE. [Concomitant]
     Active Substance: NICOTINE
     Indication: PRODUCT USED FOR UNKNOWN INDICATION
     Dosage: SMOKING 12 CIGARETTES A DAY
     Route: 055
  3. SUBOXONE [Suspect]
     Active Substance: BUPRENORPHINE HYDROCHLORIDE\NALOXONE HYDROCHLORIDE
     Dosage: SUBOXONE FILM; TAKING 3/4 OF A STRIP DAILY, CUTTING, SOMETIMES TAKING AN ENTIRE 8 MG STRIP AS NEEDED
     Route: 060
     Dates: start: 2013, end: 2014
  4. SUBOXONE [Suspect]
     Active Substance: BUPRENORPHINE HYDROCHLORIDE\NALOXONE HYDROCHLORIDE
     Indication: DRUG DEPENDENCE
     Dosage: SUBOXONE FILM
     Route: 060
     Dates: start: 201110, end: 2013
  5. ONE A DAY WOMEN^S VITAMIN [Concomitant]
     Indication: NUTRITIONAL SUPPLEMENTATION
     Dosage: DOSING DETAILS UNKNOWN; 1 TABLET DAILY
     Route: 048

REACTIONS (12)
  - Nausea [Recovering/Resolving]
  - Swollen tongue [Not Recovered/Not Resolved]
  - Night sweats [Not Recovered/Not Resolved]
  - Fear [Not Recovered/Not Resolved]
  - Drug withdrawal syndrome [Recovering/Resolving]
  - Substance abuse [Recovered/Resolved]
  - Vomiting [Recovering/Resolving]
  - Glossodynia [Not Recovered/Not Resolved]
  - Irritability [Not Recovered/Not Resolved]
  - Wrong technique in drug usage process [Unknown]
  - Headache [Recovering/Resolving]
  - Diarrhoea [Recovering/Resolving]

NARRATIVE: CASE EVENT DATE: 2011
